FAERS Safety Report 8206366-9 (Version None)
Quarter: 2012Q1

REPORT INFORMATION
  Report Type: 
  Country: None (occurrence: None)
  Receive Date: 20120313
  Receipt Date: 20120308
  Transmission Date: 20120608
  Serious: Yes (Hospitalization)
  Sender: FDA-Public Use
  Company Number: PHHY2012AU003296

PATIENT
  Sex: Male

DRUGS (1)
  1. GLEEVEC [Suspect]
     Indication: CHRONIC MYELOID LEUKAEMIA
     Dosage: 400 MG, DAILY
     Route: 048
     Dates: start: 20110301

REACTIONS (5)
  - NEPHROLITHIASIS [None]
  - CALCULUS URETERIC [None]
  - RENAL COLIC [None]
  - PAIN [None]
  - RENAL IMPAIRMENT [None]
